FAERS Safety Report 19690894 (Version 1)
Quarter: 2021Q3

REPORT INFORMATION
  Report Type: Spontaneous
  Country: US (occurrence: US)
  Receive Date: 20210812
  Receipt Date: 20210812
  Transmission Date: 20211014
  Serious: Yes (Disabling, Other)
  Sender: FDA-Public Use
  Company Number: None

PATIENT
  Age: 67 Year
  Sex: Male
  Weight: 108.9 kg

DRUGS (7)
  1. NOVOLOG [Concomitant]
     Active Substance: INSULIN ASPART
  2. LUCENTIS [Suspect]
     Active Substance: RANIBIZUMAB
     Indication: EYE OEDEMA
     Dosage: ?          QUANTITY:1 INJECTION(S);OTHER ROUTE:INJECTION INTO EYE?
     Route: 047
     Dates: start: 20210716, end: 20210716
  3. LANTUS [Concomitant]
     Active Substance: INSULIN GLARGINE
  4. LUCENTIS [Suspect]
     Active Substance: RANIBIZUMAB
     Indication: DIABETES MELLITUS
     Dosage: ?          QUANTITY:1 INJECTION(S);OTHER ROUTE:INJECTION INTO EYE?
     Route: 047
     Dates: start: 20210716, end: 20210716
  5. PLAVIX [Concomitant]
     Active Substance: CLOPIDOGREL BISULFATE
  6. LISINOPRIL. [Concomitant]
     Active Substance: LISINOPRIL
  7. METOPROLOL. [Concomitant]
     Active Substance: METOPROLOL

REACTIONS (6)
  - Bacillus infection [None]
  - Post procedural infection [None]
  - Eye infection [None]
  - Iatrogenic infection [None]
  - Eye excision [None]
  - Eye pain [None]

NARRATIVE: CASE EVENT DATE: 20210717
